FAERS Safety Report 5147930-3 (Version None)
Quarter: 2006Q4

REPORT INFORMATION
  Report Type: 
  Country: None (occurrence: None)
  Receive Date: 20061110
  Receipt Date: 20051216
  Transmission Date: 20070319
  Serious: Yes (Death)
  Sender: FDA-Public Use
  Company Number: US-SANOFI-SYNTHELABO-A03200504338

PATIENT
  Age: 72 Year
  Sex: Female

DRUGS (3)
  1. XANAX [Concomitant]
     Dosage: UNK
     Route: 065
  2. COUMADIN [Concomitant]
     Dosage: UNK
     Route: 065
  3. AMBIEN [Suspect]
     Indication: INSOMNIA
     Route: 048
     Dates: start: 20051101

REACTIONS (2)
  - DEATH [None]
  - DRUG INEFFECTIVE [None]
